FAERS Safety Report 9714514 (Version 2)
Quarter: 2013Q4

REPORT INFORMATION
  Report Type: Spontaneous
  Country: GB (occurrence: GB)
  Receive Date: 20131126
  Receipt Date: 20131127
  Transmission Date: 20140711
  Serious: Yes (Other)
  Sender: FDA-Public Use
  Company Number: GB-PFIZER INC-2013335040

PATIENT
  Age: 80 Year
  Sex: Male

DRUGS (1)
  1. NICORETTE INHALER [Suspect]
     Indication: SMOKING CESSATION THERAPY
     Dosage: 2 CARTRIDGES A DAY
     Route: 055

REACTIONS (1)
  - Drug dependence [Not Recovered/Not Resolved]
